FAERS Safety Report 10399770 (Version 2)
Quarter: 2014Q3

REPORT INFORMATION
  Report Type: Spontaneous
  Country: US (occurrence: US)
  Receive Date: 20140821
  Receipt Date: 20140821
  Transmission Date: 20150326
  Serious: Yes (Hospitalization)
  Sender: FDA-Public Use
  Company Number: US-GLAXOSMITHKLINE-A0745825A

PATIENT
  Sex: Female
  Weight: 72.3 kg

DRUGS (17)
  1. GLYBURIDE. [Concomitant]
     Active Substance: GLYBURIDE
  2. NASOCORT [Concomitant]
     Active Substance: TRIAMCINOLONE ACETONIDE
  3. AMITRIPTYLINE [Concomitant]
     Active Substance: AMITRIPTYLINE
  4. FEXOFENADINE [Concomitant]
     Active Substance: FEXOFENADINE\FEXOFENADINE HYDROCHLORIDE
  5. PREMARIN [Concomitant]
     Active Substance: ESTROGENS, CONJUGATED
  6. METFORMIN [Concomitant]
     Active Substance: METFORMIN HYDROCHLORIDE
  7. INDAPAMIDE. [Concomitant]
     Active Substance: INDAPAMIDE
  8. ZESTRIL [Concomitant]
     Active Substance: LISINOPRIL
  9. SULFAMETHOXAZOLE [Concomitant]
     Active Substance: SULFAMETHOXAZOLE
  10. AMOXICILLIN. [Concomitant]
     Active Substance: AMOXICILLIN
  11. HYDROCODONE [Concomitant]
     Active Substance: HYDROCODONE
  12. AVANDIA [Suspect]
     Active Substance: ROSIGLITAZONE MALEATE
     Indication: DIABETES MELLITUS
     Dosage: 2MG TWICE PER DAY
     Route: 048
     Dates: start: 20020422, end: 20070426
  13. ZITHROMAX [Concomitant]
     Active Substance: AZITHROMYCIN DIHYDRATE
  14. METHOCARBAMOL. [Concomitant]
     Active Substance: METHOCARBAMOL
  15. LISINOPRIL. [Concomitant]
     Active Substance: LISINOPRIL
  16. LOVASTATIN. [Concomitant]
     Active Substance: LOVASTATIN
  17. COUGH MEDICATION [Concomitant]
     Active Substance: UNSPECIFIED INGREDIENT

REACTIONS (4)
  - Cardiac failure congestive [Unknown]
  - Coronary artery disease [Unknown]
  - Myocardial infarction [Unknown]
  - Acute coronary syndrome [Unknown]
